FAERS Safety Report 9515255 (Version 2)
Quarter: 2013Q3

REPORT INFORMATION
  Report Type: Report from Study
  Country: JP (occurrence: JP)
  Receive Date: 20130911
  Receipt Date: 20130920
  Transmission Date: 20140515
  Serious: Yes (Hospitalization, Other)
  Sender: FDA-Public Use
  Company Number: JP-JNJFOC-20130904598

PATIENT
  Age: 55 Year
  Sex: Female
  Weight: 65 kg

DRUGS (12)
  1. SIMPONI [Suspect]
     Indication: RHEUMATOID ARTHRITIS
     Route: 058
     Dates: start: 20120801, end: 20120801
  2. SIMPONI [Suspect]
     Indication: RHEUMATOID ARTHRITIS
     Route: 058
     Dates: start: 20120704, end: 20120704
  3. SIMPONI [Suspect]
     Indication: RHEUMATOID ARTHRITIS
     Route: 058
     Dates: start: 20110927, end: 201206
  4. METOLATE [Suspect]
     Indication: RHEUMATOID ARTHRITIS
     Route: 048
     Dates: end: 20120822
  5. FOLIAMIN [Concomitant]
     Indication: PROPHYLAXIS
     Route: 048
  6. FOLIAMIN [Concomitant]
     Indication: PROPHYLAXIS
     Route: 048
  7. BONALON [Concomitant]
     Indication: OSTEOPOROSIS
     Route: 048
  8. TRICOR [Concomitant]
     Indication: HYPERCHOLESTEROLAEMIA
     Route: 048
  9. TAKEPRON [Concomitant]
     Indication: PROPHYLAXIS
     Route: 048
  10. PREDNISOLONE ACETATE [Concomitant]
     Route: 065
  11. PREDNISOLONE ACETATE [Concomitant]
     Route: 065
     Dates: start: 20130815
  12. MOHRUS TAPE [Concomitant]
     Indication: RHEUMATOID ARTHRITIS
     Route: 062

REACTIONS (4)
  - Sepsis [Unknown]
  - Meningitis bacterial [Unknown]
  - Pyelonephritis [Unknown]
  - Arthritis bacterial [Not Recovered/Not Resolved]
